FAERS Safety Report 21890086 (Version 1)
Quarter: 2023Q1

REPORT INFORMATION
  Report Type: Spontaneous
  Country: US (occurrence: US)
  Receive Date: 20230120
  Receipt Date: 20230120
  Transmission Date: 20230417
  Serious: Yes (Hospitalization)
  Sender: FDA-Public Use
  Company Number: US-GLAXOSMITHKLINE-US2023004985

PATIENT

DRUGS (3)
  1. ZEJULA [Suspect]
     Active Substance: NIRAPARIB
     Indication: Fallopian tube cancer
     Dosage: 300 MG
     Dates: start: 20190107, end: 20190120
  2. MUCINEX [Concomitant]
     Active Substance: GUAIFENESIN
     Indication: Sinusitis
     Dosage: UNK
     Dates: end: 20190123
  3. AMOXICILLIN [Concomitant]
     Active Substance: AMOXICILLIN
     Indication: Sinusitis
     Dosage: UNK
     Dates: end: 20190123

REACTIONS (7)
  - Platelet count decreased [Recovered/Resolved]
  - Insomnia [Recovered/Resolved]
  - Increased tendency to bruise [Recovered/Resolved]
  - Palpitations [Recovered/Resolved]
  - Panic attack [Recovered/Resolved]
  - Blood pressure increased [Unknown]
  - Feeling abnormal [Unknown]

NARRATIVE: CASE EVENT DATE: 20190108
